FAERS Safety Report 9690612 (Version 1)
Quarter: 2013Q4

REPORT INFORMATION
  Report Type: Spontaneous
  Country: US (occurrence: None)
  Receive Date: 20131114
  Receipt Date: 20131114
  Transmission Date: 20140711
  Serious: Yes (Other)
  Sender: FDA-Public Use
  Company Number: None

PATIENT
  Age: 53 Year
  Sex: Female
  Weight: 72.58 kg

DRUGS (4)
  1. ACTHAR [Suspect]
     Indication: MULTIPLE SCLEROSIS
     Dosage: 100 UNITS QD SUBCUTANEOUS
     Route: 058
     Dates: start: 20131112
  2. BACLOFEN [Concomitant]
  3. ASA [Concomitant]
  4. PERCOCET [Concomitant]

REACTIONS (3)
  - Migraine [None]
  - Flushing [None]
  - Palpitations [None]
